FAERS Safety Report 7741000-3 (Version None)
Quarter: 2011Q3

REPORT INFORMATION
  Report Type: 
  Country: None (occurrence: None)
  Receive Date: 20110909
  Receipt Date: 20110905
  Transmission Date: 20111222
  Serious: Yes (Other)
  Sender: FDA-Public Use
  Company Number: JP-AMGEN-JPNCT2011022432

PATIENT
  Age: 40 Year
  Sex: Female

DRUGS (12)
  1. DENOSUMAB [Suspect]
     Indication: METASTASES TO BONE
     Dosage: UNK
     Dates: start: 20090810, end: 20100705
  2. LOXONIN [Concomitant]
     Dosage: 60 MG, QD
     Route: 048
  3. AROMASIN [Concomitant]
     Dosage: UNK
     Dates: start: 20100706, end: 20100825
  4. DEXAMETHASONE SODIUM PHOSPHATE [Concomitant]
     Dosage: UNK UNK, QD
     Route: 042
     Dates: start: 20081215, end: 20100705
  5. FARESTON [Concomitant]
     Dosage: UNK
     Dates: start: 20090923, end: 20100516
  6. EPIRUBICIN [Concomitant]
     Dosage: UNK
     Dates: start: 20100826, end: 20100826
  7. CYCLOPHOSPHAMIDE [Concomitant]
     Dosage: UNK
     Dates: start: 20100826, end: 20100826
  8. ABRAXANE [Concomitant]
     Dosage: UNK
     Dates: start: 20110120
  9. FLUOROURACIL [Concomitant]
     Dosage: UNK
     Dates: start: 20100826, end: 20100826
  10. FLUMETHOLON [Concomitant]
     Dosage: UNK
     Dates: start: 20090826, end: 20090902
  11. TAXOL [Concomitant]
     Dosage: UNK
     Dates: start: 20100917, end: 20101222
  12. GEMZAR [Concomitant]
     Dosage: UNK
     Dates: start: 20100517, end: 20100705

REACTIONS (1)
  - OSTEOMYELITIS [None]
